FAERS Safety Report 25078830 (Version 3)
Quarter: 2025Q3

REPORT INFORMATION
  Report Type: Spontaneous
  Country: US (occurrence: US)
  Receive Date: 20250314
  Receipt Date: 20250928
  Transmission Date: 20251021
  Serious: No
  Sender: SANOFI AVENTIS
  Company Number: US-SA-2025SA075182

PATIENT
  Age: 51 Year
  Sex: Female

DRUGS (1)
  1. DUPIXENT [Suspect]
     Active Substance: DUPILUMAB
     Indication: Eosinophilic oesophagitis
     Dosage: 300 MG, QW
     Route: 058
     Dates: start: 202304

REACTIONS (5)
  - Ocular discomfort [Unknown]
  - Dry skin [Unknown]
  - Toothache [Unknown]
  - Arthralgia [Unknown]
  - Oral herpes [Unknown]

NARRATIVE: CASE EVENT DATE: 20250101
